FAERS Safety Report 8297207-2 (Version None)
Quarter: 2012Q2

REPORT INFORMATION
  Report Type: 
  Country: None (occurrence: None)
  Receive Date: 20120419
  Receipt Date: 20120412
  Transmission Date: 20120825
  Serious: Yes (Life-Threatening, Hospitalization)
  Sender: FDA-Public Use
  Company Number: US-BAYER-2012-005404

PATIENT
  Age: 33 Year
  Sex: Female

DRUGS (11)
  1. YAZ [Suspect]
     Indication: ACNE
     Dosage: UNK
     Dates: start: 20000101, end: 20050101
  2. YASMIN [Suspect]
     Indication: ACNE
     Dosage: UNK
     Dates: start: 20000101, end: 20050101
  3. LORAZEPAM [Concomitant]
     Dosage: 1 MG, PRN
     Dates: start: 20041017
  4. ALBUTEROL [Concomitant]
     Dosage: 17 GM, UNK
     Route: 055
     Dates: start: 20041108
  5. ALBUTEROL [Concomitant]
     Dosage: UNK
     Dates: start: 20041220
  6. DROSPIRENONE AND ETHINYL ESTRADIOL [Suspect]
     Indication: ACNE
     Dosage: UNK
     Dates: start: 20000101, end: 20050101
  7. ZOLOFT [Concomitant]
     Dosage: 100 MG, OM
     Dates: start: 20041017, end: 20041220
  8. FLOVENT [Concomitant]
  9. HYZAAR [Concomitant]
     Indication: HYPERTENSION
  10. CARDIZEM [Concomitant]
  11. HYDROCHLOROTHIAZIDE [Concomitant]
     Dosage: UNK
     Dates: start: 20041220

REACTIONS (5)
  - THROMBOPHLEBITIS [None]
  - VEIN DISORDER [None]
  - THROMBOSIS [None]
  - PAIN [None]
  - PULMONARY EMBOLISM [None]
